FAERS Safety Report 5389271-5 (Version None)
Quarter: 2007Q3

REPORT INFORMATION
  Report Type: 
  Country: None (occurrence: None)
  Receive Date: 20070717
  Receipt Date: 20070705
  Transmission Date: 20080115
  Serious: Yes (Other)
  Sender: FDA-Public Use
  Company Number: GB-BAUSCH-2007BL002261

PATIENT
  Age: 72 Year
  Sex: Female

DRUGS (13)
  1. CYCLOPENTOLATE HCL [Suspect]
     Route: 047
     Dates: start: 20070605, end: 20070605
  2. MINIMS PHENYLEPHRINE HYDROCHLORIDE 2.5% [Suspect]
     Route: 047
     Dates: start: 20070605, end: 20070605
  3. MINIMS CHLORAMPHENICOL 0.5% [Suspect]
     Route: 047
     Dates: start: 20070605, end: 20070605
  4. FLURBIPROFEN SODIUM [Suspect]
     Route: 047
     Dates: start: 20070605, end: 20070605
  5. LIDOCAINE [Suspect]
     Route: 061
     Dates: start: 20070605, end: 20070605
  6. LIDOCAINE [Suspect]
     Route: 031
     Dates: start: 20070605, end: 20070605
  7. POVIDONE IODINE [Suspect]
     Route: 047
     Dates: start: 20070605, end: 20070605
  8. POVIDONE IODINE [Suspect]
     Route: 061
     Dates: start: 20070605, end: 20070605
  9. BALANCED SALT SOLUTION [Suspect]
     Route: 031
     Dates: start: 20070605, end: 20070605
  10. VANCOMYCIN HCL [Suspect]
     Route: 031
     Dates: start: 20070605, end: 20070605
  11. ADRENALINE [Suspect]
     Route: 031
     Dates: start: 20070605, end: 20070605
  12. HYALURONIDASE [Suspect]
     Route: 031
     Dates: start: 20070605, end: 20070605
  13. BETAMETHASONE/NEOMYCIN [Suspect]
     Route: 047
     Dates: start: 20070605

REACTIONS (1)
  - IRIDOCYCLITIS [None]
